FAERS Safety Report 4752845-6 (Version None)
Quarter: 2005Q3

REPORT INFORMATION
  Report Type: 
  Country: None (occurrence: None)
  Receive Date: 20050714
  Receipt Date: 20040805
  Transmission Date: 20060218
  Serious: Yes (Hospitalization)
  Sender: FDA-Public Use
  Company Number: 200415931US

PATIENT

DRUGS (1)
  1. TAXOTERE [Suspect]

REACTIONS (2)
  - OEDEMA [None]
  - RASH [None]
